FAERS Safety Report 7025746-0 (Version None)
Quarter: 2010Q4

REPORT INFORMATION
  Report Type: 
  Country: None (occurrence: None)
  Receive Date: 20101004
  Receipt Date: 20100923
  Transmission Date: 20110411
  Serious: Yes (Hospitalization, Other)
  Sender: FDA-Public Use
  Company Number: US-BIOGENIDEC-2009BI038908

PATIENT
  Sex: Female

DRUGS (3)
  1. AVONEX [Suspect]
     Indication: MULTIPLE SCLEROSIS
     Route: 030
     Dates: start: 19991112, end: 20040616
  2. AVONEX [Suspect]
     Route: 030
     Dates: start: 20070207
  3. VITAMIN B-12 [Concomitant]

REACTIONS (14)
  - ARTHROPATHY [None]
  - CARDIAC FAILURE CONGESTIVE [None]
  - CAROTID ARTERY OCCLUSION [None]
  - CHRONIC OBSTRUCTIVE PULMONARY DISEASE [None]
  - DIABETES MELLITUS [None]
  - FALL [None]
  - FLUID RETENTION [None]
  - HYPERTENSION [None]
  - MULTIPLE SCLEROSIS RELAPSE [None]
  - MUSCULOSKELETAL CHEST PAIN [None]
  - OSTEOPOROSIS [None]
  - PULMONARY OEDEMA [None]
  - TRAUMATIC HAEMATOMA [None]
  - WEIGHT DECREASED [None]
